FAERS Safety Report 4649553-9 (Version None)
Quarter: 2005Q2

REPORT INFORMATION
  Report Type: 
  Country: None (occurrence: None)
  Receive Date: 20050427
  Receipt Date: 20050420
  Transmission Date: 20051028
  Serious: Yes (Other)
  Sender: FDA-Public Use
  Company Number: 2005063301

PATIENT
  Sex: Male

DRUGS (5)
  1. LIPITOR [Suspect]
     Indication: ILL-DEFINED DISORDER
     Dates: start: 20030101
  2. NORVASC [Suspect]
     Indication: ILL-DEFINED DISORDER
  3. ASPIRIN [Suspect]
     Indication: ILL-DEFINED DISORDER
  4. VALSARTAN [Suspect]
     Indication: ILL-DEFINED DISORDER
  5. HYDROCHLOROTHIAZIDE [Suspect]
     Indication: ILL-DEFINED DISORDER

REACTIONS (3)
  - GENERALISED OEDEMA [None]
  - PROTEIN TOTAL ABNORMAL [None]
  - PROTEINURIA [None]
